FAERS Safety Report 6000085-5 (Version None)
Quarter: 2008Q4

REPORT INFORMATION
  Report Type: 
  Country: None (occurrence: None)
  Receive Date: 20081215
  Receipt Date: 20081204
  Transmission Date: 20090506
  Serious: Yes (Congenital Anomaly)
  Sender: FDA-Public Use
  Company Number: B0549372A

PATIENT
  Age: 2 Day
  Sex: Female

DRUGS (7)
  1. RETROVIR [Suspect]
     Indication: ANTIVIRAL PROPHYLAXIS
     Route: 042
     Dates: start: 20080831, end: 20081001
  2. IRON [Concomitant]
     Route: 048
  3. VITAMIN D [Concomitant]
     Route: 048
  4. BETADINE [Concomitant]
     Route: 061
  5. KIVEXA [Concomitant]
  6. NORVIR [Concomitant]
  7. REYATAZ [Concomitant]

REACTIONS (5)
  - ANAEMIA [None]
  - BLOOD LACTIC ACID INCREASED [None]
  - CONGENITAL HYPOTHYROIDISM [None]
  - DRUG EXPOSURE DURING PREGNANCY [None]
  - MITOCHONDRIAL CYTOPATHY [None]
